FAERS Safety Report 16723437 (Version 3)
Quarter: 2020Q1

REPORT INFORMATION
  Report Type: Spontaneous
  Country: CA (occurrence: CA)
  Receive Date: 20190821
  Receipt Date: 20200126
  Transmission Date: 20200409
  Serious: Yes (Hospitalization, Other)
  Sender: FDA-Public Use
  Company Number: CA-AUROBINDO-AUR-APL-2019-053880

PATIENT
  Age: 34 Year
  Sex: Female

DRUGS (22)
  1. FLAGYL [Concomitant]
     Active Substance: METRONIDAZOLE\METRONIDAZOLE HYDROCHLORIDE
     Indication: PRODUCT USED FOR UNKNOWN INDICATION
     Dosage: UNK
     Route: 065
  2. MESALAZINE [Concomitant]
     Active Substance: MESALAMINE
     Indication: PROCTITIS
  3. PREDNISONE. [Concomitant]
     Active Substance: PREDNISONE
     Indication: PRODUCT USED FOR UNKNOWN INDICATION
     Dosage: 40 MILLIGRAM, ONCE A DAY
     Route: 048
  4. SOLU-MEDROL [Suspect]
     Active Substance: METHYLPREDNISOLONE SODIUM SUCCINATE
     Indication: COLITIS ULCERATIVE
     Dosage: UNK
     Route: 042
  5. MULTIVITAMINS WITH MINERALS [Concomitant]
     Active Substance: MINERALS\VITAMINS
     Indication: PRODUCT USED FOR UNKNOWN INDICATION
     Dosage: UNK
     Route: 065
  6. CAPTOPRIL. [Concomitant]
     Active Substance: CAPTOPRIL
     Indication: PRODUCT USED FOR UNKNOWN INDICATION
     Dosage: UNK
     Route: 065
  7. POTASSIUM [Concomitant]
     Active Substance: POTASSIUM
     Dosage: 1 DOSAGE FORM, ONCE A DAY
     Route: 048
  8. CAPTOPRIL. [Concomitant]
     Active Substance: CAPTOPRIL
     Indication: PRODUCT USED FOR UNKNOWN INDICATION
     Dosage: UNK
     Route: 065
  9. MULTIVITAMINS [Concomitant]
     Active Substance: VITAMINS
     Indication: PRODUCT USED FOR UNKNOWN INDICATION
     Dosage: UNK
     Route: 065
  10. ONDANSETRON [Concomitant]
     Active Substance: ONDANSETRON
     Dosage: 8 MILLIGRAM, 3 TIMES A DAY
     Route: 048
  11. ONDANSETRON. [Suspect]
     Active Substance: ONDANSETRON
     Indication: DIARRHOEA
     Dosage: UNK
     Route: 065
  12. MESALAMINE. [Concomitant]
     Active Substance: MESALAMINE
     Indication: PRODUCT USED FOR UNKNOWN INDICATION
     Dosage: 1 MILLIGRAM
     Route: 065
  13. MESALAZINE [Concomitant]
     Active Substance: MESALAMINE
     Indication: PRODUCT USED FOR UNKNOWN INDICATION
     Dosage: 1 GRAM, ONCE A DAY
     Route: 065
  14. IMODIUM [Suspect]
     Active Substance: LOPERAMIDE HYDROCHLORIDE
     Indication: DIARRHOEA
     Dosage: UNK
     Route: 065
  15. CIPROFLOXACIN. [Suspect]
     Active Substance: CIPROFLOXACIN
     Indication: PRODUCT USED FOR UNKNOWN INDICATION
     Dosage: UNK
     Route: 065
  16. CALCIUM [Concomitant]
     Active Substance: CALCIUM
     Indication: PRODUCT USED FOR UNKNOWN INDICATION
     Dosage: UNK
     Route: 048
  17. POTASSIUM [Concomitant]
     Active Substance: POTASSIUM
     Indication: PRODUCT USED FOR UNKNOWN INDICATION
     Dosage: 1 MILLIGRAM, ONCE A DAY
     Route: 048
  18. 6 MP [Concomitant]
     Active Substance: MERCAPTOPURINE
     Indication: PRODUCT USED FOR UNKNOWN INDICATION
     Dosage: UNK
     Route: 065
  19. ONDANSETRON [Suspect]
     Active Substance: ONDANSETRON
     Indication: DIARRHOEA
     Dosage: UNK
     Route: 065
  20. METHYLPREDNISOLONE. [Suspect]
     Active Substance: METHYLPREDNISOLONE
     Indication: PRODUCT USED FOR UNKNOWN INDICATION
     Dosage: 20 MILLIGRAM, 3 TIMES A DAY
     Route: 042
  21. MESALAMINE. [Concomitant]
     Active Substance: MESALAMINE
     Indication: PROCTITIS
     Dosage: 4.8 MILLIGRAM, ONCE A DAY
     Route: 048
  22. ONDANSETRON [Concomitant]
     Active Substance: ONDANSETRON
     Indication: PRODUCT USED FOR UNKNOWN INDICATION
     Dosage: 0.8 MILLIGRAM, 3 TIMES A DAY
     Route: 048

REACTIONS (21)
  - Blood sodium decreased [Recovering/Resolving]
  - Nausea [Recovering/Resolving]
  - Blood potassium decreased [Recovering/Resolving]
  - Feeding intolerance [Recovering/Resolving]
  - Segmental diverticular colitis [Recovering/Resolving]
  - Diarrhoea [Recovering/Resolving]
  - Drug ineffective [Recovering/Resolving]
  - Gastrointestinal sounds abnormal [Recovering/Resolving]
  - Vomiting [Recovering/Resolving]
  - C-reactive protein increased [Recovering/Resolving]
  - Chills [Recovering/Resolving]
  - Abnormal behaviour [Recovering/Resolving]
  - Pedal pulse abnormal [Recovering/Resolving]
  - Abdominal pain upper [Recovering/Resolving]
  - Blood pressure abnormal [Recovering/Resolving]
  - Calcium ionised decreased [Recovering/Resolving]
  - Night sweats [Recovering/Resolving]
  - Pyrexia [Recovering/Resolving]
  - Self-injurious ideation [Recovering/Resolving]
  - Crohn^s disease [Recovering/Resolving]
  - Dehydration [Recovering/Resolving]
